FAERS Safety Report 5773190-6 (Version None)
Quarter: 2008Q2

REPORT INFORMATION
  Report Type: 
  Country: None (occurrence: None)
  Receive Date: 20080612
  Receipt Date: 20080612
  Transmission Date: 20081010
  Serious: Yes (Hospitalization, Other)
  Sender: FDA-Public Use
  Company Number: None

PATIENT
  Sex: Female
  Weight: 81.6475 kg

DRUGS (8)
  1. CHANTIX [Suspect]
     Indication: SMOKING CESSATION THERAPY
     Dosage: 0.5MG, QD THEN BID, 047
     Dates: start: 20080416, end: 20080422
  2. CHANTIX [Suspect]
     Indication: SMOKING CESSATION THERAPY
     Dosage: 1.0MG, BID, 047
     Dates: start: 20080422, end: 20080527
  3. ARIPIPRAZOLE [Concomitant]
  4. BUPROPION HCL [Concomitant]
  5. ATIVAN [Concomitant]
  6. BENADRYL [Concomitant]
  7. PRILOSEC [Concomitant]
  8. ASPIRIN [Concomitant]

REACTIONS (6)
  - DEPRESSION [None]
  - FEELING ABNORMAL [None]
  - FEELING OF DESPAIR [None]
  - STRESS [None]
  - SUICIDAL IDEATION [None]
  - TREATMENT NONCOMPLIANCE [None]
